FAERS Safety Report 7212843-X (Version None)
Quarter: 2011Q1

REPORT INFORMATION
  Report Type: 
  Country: None (occurrence: None)
  Receive Date: 20110106
  Receipt Date: 20101223
  Transmission Date: 20110831
  Serious: Yes (Hospitalization)
  Sender: FDA-Public Use
  Company Number: IL-ROCHE-750249

PATIENT
  Sex: Male

DRUGS (7)
  1. ACETYLSALICYLIC ACID [Concomitant]
     Dates: start: 20091115
  2. CINACALCET [Concomitant]
     Dates: start: 20091115
  3. ATENOLOL [Concomitant]
     Dates: start: 20091115
  4. SIMVASTATIN [Concomitant]
     Dates: start: 20091115
  5. ALPHA D3 [Concomitant]
     Dosage: DRUG NAME REPORTED AS ALFA D3
     Dates: start: 20091115
  6. METHOXY POLYETHYLENE GLYCOL-EPOETIN BETA [Suspect]
     Dosage: LAST DOSE PRIOR TO SAE: 22 NOVEMBER 2010.
     Route: 042
     Dates: start: 20100322
  7. VALSARTAN [Concomitant]
     Dates: start: 20091115

REACTIONS (2)
  - PNEUMONIA [None]
  - OTITIS MEDIA [None]
